FAERS Safety Report 10033263 (Version 1)
Quarter: 2014Q1

REPORT INFORMATION
  Report Type: Spontaneous
  Country: US (occurrence: US)
  Receive Date: 20140324
  Receipt Date: 20140324
  Transmission Date: 20141002
  Serious: Yes (Death, Other)
  Sender: FDA-Public Use
  Company Number: US-GILEAD-2014-0097313

PATIENT
  Age: 32 Year
  Sex: Male

DRUGS (2)
  1. SOVALDI [Suspect]
     Indication: HEPATITIS C
     Route: 065
  2. RIBAVIRIN [Concomitant]

REACTIONS (1)
  - Cardiac arrest [Fatal]
